FAERS Safety Report 5013255-X (Version None)
Quarter: 2006Q2

REPORT INFORMATION
  Report Type: 
  Country: None (occurrence: None)
  Receive Date: 20060530
  Receipt Date: 20060330
  Transmission Date: 20061013
  Serious: No
  Sender: FDA-Public Use
  Company Number: US-GLAXOSMITHKLINE-A0599748A

PATIENT
  Age: 62 Year
  Sex: Female

DRUGS (2)
  1. WELLBUTRIN XL [Suspect]
     Indication: DEPRESSION
     Dosage: 150MG PER DAY
     Route: 048
     Dates: start: 20060324
  2. LEXAPRO [Concomitant]

REACTIONS (3)
  - DRUG ADMINISTRATION ERROR [None]
  - ILL-DEFINED DISORDER [None]
  - THERAPEUTIC RESPONSE UNEXPECTED [None]
